FAERS Safety Report 18360296 (Version 2)
Quarter: 2021Q1

REPORT INFORMATION
  Report Type: Report from Study
  Country: PT (occurrence: PT)
  Receive Date: 20201008
  Receipt Date: 20210302
  Transmission Date: 20210419
  Serious: Yes (Death, Other)
  Sender: FDA-Public Use
  Company Number: PT-MYLANLABS-2020M1084317

PATIENT
  Age: 61 Year
  Sex: Female

DRUGS (2)
  1. CARBAMAZEPINE. [Interacting]
     Active Substance: CARBAMAZEPINE
     Indication: PRODUCT USED FOR UNKNOWN INDICATION
     Dosage: UNK
     Route: 065
  2. OLANZAPINE. [Suspect]
     Active Substance: OLANZAPINE
     Indication: BIPOLAR DISORDER
     Dosage: UNK
     Route: 065

REACTIONS (6)
  - Bipolar disorder [Fatal]
  - Labelled drug-drug interaction medication error [Unknown]
  - Toxicity to various agents [Fatal]
  - Drug interaction [Fatal]
  - Completed suicide [Fatal]
  - Antipsychotic drug level above therapeutic [Unknown]
